FAERS Safety Report 8080784-4 (Version None)
Quarter: 2012Q1

REPORT INFORMATION
  Report Type: 
  Country: None (occurrence: None)
  Receive Date: 20120130
  Receipt Date: 20120130
  Transmission Date: 20120608
  Serious: Yes (Hospitalization, Other)
  Sender: FDA-Public Use
  Company Number: US-JNJFOC-20110801296

PATIENT
  Sex: Male
  Weight: 92.99 kg

DRUGS (5)
  1. DEPAKOTE ER [Concomitant]
     Indication: DRUG THERAPY
     Route: 048
  2. INVEGA SUSTENNA [Suspect]
     Route: 030
     Dates: start: 20110208
  3. PROZAC [Concomitant]
     Indication: DEPRESSION
     Route: 048
     Dates: start: 20110127
  4. RISPERDAL [Concomitant]
     Route: 048
     Dates: start: 20110127
  5. INVEGA SUSTENNA [Suspect]
     Indication: SCHIZOPHRENIA
     Route: 030

REACTIONS (2)
  - CELLULITIS [None]
  - INJECTION SITE ABSCESS [None]
